FAERS Safety Report 5917983-0 (Version None)
Quarter: 2008Q4

REPORT INFORMATION
  Report Type: 
  Country: None (occurrence: None)
  Receive Date: 20081014
  Receipt Date: 20081003
  Transmission Date: 20090506
  Serious: Yes (Other)
  Sender: FDA-Public Use
  Company Number: US-ELI_LILLY_AND_COMPANY-US200810001952

PATIENT
  Age: 38 Year
  Sex: Male

DRUGS (7)
  1. BYETTA [Suspect]
     Indication: TYPE 2 DIABETES MELLITUS
     Dosage: 10 UG, 2/D
     Route: 058
     Dates: start: 20070301, end: 20080501
  2. LIPITOR [Concomitant]
     Dosage: 40 MG, DAILY (1/D)
  3. NEURONTIN [Concomitant]
     Dosage: 600 MG, 2/D
  4. BENTYL [Concomitant]
     Dosage: 10 MG, 3/D
  5. LISINOPRIL [Concomitant]
  6. PREVACID [Concomitant]
     Dosage: 30 MG, DAILY (1/D)
  7. BACLOFEN [Concomitant]
     Dosage: 10 MG, 2/D

REACTIONS (1)
  - PANCREATITIS [None]
